FAERS Safety Report 8777064 (Version 1)
Quarter: 2012Q4

REPORT INFORMATION
  Report Type: 
  Country: US (occurrence: US)
  Receive Date: 20120911
  Receipt Date: 20120911
  Transmission Date: 20130627
  Serious: Yes (Other)
  Sender: FDA-Public Use
  Company Number: US-BRISTOL-MYERS SQUIBB COMPANY-16863078

PATIENT
  Age: 20 Year
  Sex: Male
  Weight: 84 kg

DRUGS (3)
  1. ABILIFY TABS 10 MG [Suspect]
     Indication: MANIA
     Dosage: Feb12:5mg/d,2D69670,exp:Mr15;10mg:0F596898A,expMy12;10mg:0F60008A.expJl12,2.5mg
1DF:1/2tabsO(10mg)
     Dates: start: 201107
  2. LITHIUM [Suspect]
     Indication: MANIA
     Dates: start: 201107, end: 201112
  3. ESCITALOPRAM [Suspect]

REACTIONS (7)
  - Mania [Unknown]
  - Feeling jittery [Recovered/Resolved]
  - Depression [Unknown]
  - Muscle twitching [Recovered/Resolved]
  - Wrong technique in drug usage process [Unknown]
  - Abnormal behaviour [Recovering/Resolving]
  - Expired drug administered [Unknown]
